FAERS Safety Report 17487405 (Version 1)
Quarter: 2020Q1

REPORT INFORMATION
  Report Type: Spontaneous
  Country: BR (occurrence: BR)
  Receive Date: 20200303
  Receipt Date: 20200303
  Transmission Date: 20200409
  Serious: Yes (Other)
  Sender: FDA-Public Use
  Company Number: BR-SCIEGEN PHARMACEUTICALS INC-2020SCILIT00058

PATIENT
  Age: 67 Year
  Sex: Male

DRUGS (7)
  1. ACETYLSALICYLIC ACID [Concomitant]
     Active Substance: ASPIRIN
  2. ROSUVASTATIN TABLETS [Suspect]
     Active Substance: ROSUVASTATIN
  3. ATENOLOL. [Concomitant]
     Active Substance: ATENOLOL
  4. FIBRATE [Concomitant]
     Active Substance: UNSPECIFIED INGREDIENT
  5. HYDROCHLOROTHIAZIDE. [Concomitant]
     Active Substance: HYDROCHLOROTHIAZIDE
  6. INSULIN [Concomitant]
     Active Substance: INSULIN NOS
  7. LOSARTAN. [Concomitant]
     Active Substance: LOSARTAN

REACTIONS (1)
  - Neuroendocrine carcinoma of the skin [Unknown]
